FAERS Safety Report 4617205-7 (Version None)
Quarter: 2005Q1

REPORT INFORMATION
  Report Type: 
  Country: None (occurrence: None)
  Receive Date: 20050323
  Receipt Date: 20050321
  Transmission Date: 20050727
  Serious: Yes (Other)
  Sender: FDA-Public Use
  Company Number: PHNU2005DE01429

PATIENT
  Sex: Female

DRUGS (3)
  1. CLOZARIL [Suspect]
     Indication: SCHIZOPHRENIA
     Route: 048
     Dates: start: 20010101
  2. NEBILET [Suspect]
     Dates: start: 20050201
  3. ABILIFY [Suspect]
     Dates: start: 20041001

REACTIONS (2)
  - DRUG INTERACTION [None]
  - DYSPNOEA [None]
